FAERS Safety Report 10070225 (Version 3)
Quarter: 2014Q2

REPORT INFORMATION
  Report Type: Spontaneous
  Country: IT (occurrence: None)
  Receive Date: 20140408
  Receipt Date: 20140523
  Transmission Date: 20141212
  Serious: Yes (Hospitalization)
  Sender: FDA-Public Use
  Company Number: AUR-APL-2014-04180

PATIENT
  Age: 68 Year
  Sex: Female

DRUGS (7)
  1. METFORMIN [Suspect]
     Indication: TYPE 2 DIABETES MELLITUS
     Dosage: (2 GM,1 D)
     Route: 048
     Dates: start: 20100809, end: 20130809
  2. TIKLID (TICLOPIDINE HYDROCHLORIDE) [Concomitant]
  3. VICTOZA (LIRAGLUTIDE) [Concomitant]
  4. LEVOTHYROXINE (LEVOTHYROXINE) [Concomitant]
  5. ESOMEPRAZOLE (ESOMEPRAZOLE) [Concomitant]
  6. ACETYLSALICYLIC ACID (ACETYLSALICYLIC ACID) [Concomitant]
  7. ROSUVASTATIN (ROSUVASTATIN) [Concomitant]

REACTIONS (8)
  - Anuria [None]
  - Metabolic acidosis [None]
  - Hypocapnia [None]
  - Base excess [None]
  - Continuous haemodiafiltration [None]
  - Gastritis [None]
  - Drug level increased [None]
  - Blood bicarbonate decreased [None]
